FAERS Safety Report 5989677-7 (Version None)
Quarter: 2008Q4

REPORT INFORMATION
  Report Type: 
  Country: None (occurrence: None)
  Receive Date: 20081208
  Receipt Date: 20081128
  Transmission Date: 20090506
  Serious: Yes (Hospitalization, Other)
  Sender: FDA-Public Use
  Company Number: STI-2008-03648

PATIENT
  Age: 57 Year
  Sex: Female

DRUGS (4)
  1. ERYTHROMYCIN [Suspect]
     Indication: DECUBITUS ULCER
  2. CEFUROXIME [Suspect]
     Indication: DECUBITUS ULCER
  3. FLOXACILLIN SODIUM [Suspect]
     Indication: DECUBITUS ULCER
  4. TAZOCIN (PIP/TAZO) [Suspect]
     Indication: PNEUMONIA KLEBSIELLA

REACTIONS (5)
  - BLOOD ALBUMIN DECREASED [None]
  - CLOSTRIDIUM DIFFICILE COLITIS [None]
  - DISEASE RECURRENCE [None]
  - INFECTED SKIN ULCER [None]
  - KLEBSIELLA INFECTION [None]
